FAERS Safety Report 8905516 (Version 2)
Quarter: 2012Q4

REPORT INFORMATION
  Report Type: 
  Country: US (occurrence: US)
  Receive Date: 20121109
  Receipt Date: 20121121
  Transmission Date: 20130627
  Serious: Yes (Hospitalization, Other)
  Sender: FDA-Public Use
  Company Number: US-ASTRAZENECA-2012SE83181

PATIENT
  Age: 54 Year
  Sex: Female
  Weight: 61.2 kg

DRUGS (8)
  1. CRESTOR [Suspect]
     Indication: BLOOD CHOLESTEROL INCREASED
     Route: 048
     Dates: start: 2009, end: 2011
  2. CRESTOR [Suspect]
     Indication: BLOOD CHOLESTEROL INCREASED
     Route: 048
     Dates: start: 2011, end: 20121031
  3. LORAZEPAM [Concomitant]
     Indication: IRRITABLE BOWEL SYNDROME
     Route: 048
     Dates: start: 2011
  4. MVI [Concomitant]
     Indication: VITAMIN SUPPLEMENTATION
     Dosage: DAILY
     Route: 048
  5. TUMS [Concomitant]
     Indication: HYPERCHLORHYDRIA
     Route: 048
  6. FLAX SEED [Concomitant]
     Indication: VITAMIN SUPPLEMENTATION
     Dosage: DAILY
  7. ALBUTEROL NEBULIZER [Concomitant]
     Indication: CHRONIC OBSTRUCTIVE PULMONARY DISEASE
     Route: 055
  8. UNKNOWN INHALER [Concomitant]
     Indication: CHRONIC OBSTRUCTIVE PULMONARY DISEASE
     Route: 055

REACTIONS (11)
  - Renal impairment [Unknown]
  - Cardiac failure congestive [Unknown]
  - Blood pressure increased [Recovered/Resolved]
  - Renal failure [Not Recovered/Not Resolved]
  - Abdominal pain upper [Recovered/Resolved]
  - Irritable bowel syndrome [Unknown]
  - Hyperhidrosis [Recovered/Resolved]
  - Faeces discoloured [Recovering/Resolving]
  - Blood calcium increased [Unknown]
  - Pain [Recovered/Resolved]
  - Nervousness [Unknown]
